FAERS Safety Report 19016701 (Version 1)
Quarter: 2021Q1

REPORT INFORMATION
  Report Type: Spontaneous
  Country: US (occurrence: US)
  Receive Date: 20210316
  Receipt Date: 20210316
  Transmission Date: 20210420
  Serious: Yes (Hospitalization)
  Sender: FDA-Public Use
  Company Number: None

PATIENT
  Age: 39 Year
  Sex: Female

DRUGS (10)
  1. VENTOLIN HFA [Concomitant]
     Active Substance: ALBUTEROL SULFATE
  2. SCANDISHAKE [Concomitant]
     Active Substance: DIETARY SUPPLEMENT
  3. HYPERSAL 3.5% [Concomitant]
  4. ZENPEP [Suspect]
     Active Substance: PANCRELIPASE AMYLASE\PANCRELIPASE LIPASE\PANCRELIPASE PROTEASE
     Indication: CYSTIC FIBROSIS
     Dosage: ?          OTHER FREQUENCY:WITH MEALS;?
     Route: 048
     Dates: start: 20150330
  5. URSODIOL. [Concomitant]
     Active Substance: URSODIOL
  6. ZENPEP [Suspect]
     Active Substance: PANCRELIPASE AMYLASE\PANCRELIPASE LIPASE\PANCRELIPASE PROTEASE
     Dosage: ?          OTHER FREQUENCY:WITH SNACKS;?
     Route: 048
     Dates: start: 20150330
  7. OMEPRAZOLE. [Concomitant]
     Active Substance: OMEPRAZOLE
  8. LANTUS [Concomitant]
     Active Substance: INSULIN GLARGINE
  9. COMPLETE FORM D3000 [Concomitant]
  10. ALBUTEROL 0.083% NEB SLN [Suspect]
     Active Substance: ALBUTEROL SULFATE
     Indication: CYSTIC FIBROSIS
     Route: 055
     Dates: start: 20190509

REACTIONS (2)
  - Pneumonia [None]
  - Wheezing [None]

NARRATIVE: CASE EVENT DATE: 20210128
